FAERS Safety Report 4399074-6 (Version None)
Quarter: 2004Q2

REPORT INFORMATION
  Report Type: 
  Country: None (occurrence: None)
  Receive Date: 20040621
  Receipt Date: 20040126
  Transmission Date: 20050107
  Serious: Yes (Death, Other)
  Sender: FDA-Public Use
  Company Number: 2011420

PATIENT
  Age: 18 Year
  Sex: Male

DRUGS (3)
  1. OXYCONTIN [Suspect]
     Dosage: ORAL
     Route: 048
  2. ALCOHOL (ETHANOL) [Suspect]
     Dosage: ORAL
     Route: 048
  3. XANAX [Suspect]

REACTIONS (2)
  - ACCIDENTAL OVERDOSE [None]
  - DRUG ABUSER [None]
